FAERS Safety Report 5059698-X (Version None)
Quarter: 2006Q3

REPORT INFORMATION
  Report Type: 
  Country: None (occurrence: None)
  Receive Date: 20060718
  Receipt Date: 20060705
  Transmission Date: 20061208
  Serious: Yes (Hospitalization)
  Sender: FDA-Public Use
  Company Number: 200610558BFR

PATIENT
  Age: 66 Year
  Sex: Female

DRUGS (14)
  1. SORAFENIB [Suspect]
     Indication: RENAL CELL CARCINOMA STAGE UNSPECIFIED
     Dosage: 200 MG QD ORAL
     Route: 048
     Dates: start: 20060414, end: 20060531
  2. LEXOMIL [Concomitant]
  3. STILNOX [Concomitant]
  4. IXPRIM [Concomitant]
  5. DIANTALVIC [Concomitant]
  6. TOPALGIC [Concomitant]
  7. SKENAN [Concomitant]
  8. MORPHINE SULFATE [Concomitant]
  9. LAMALINE (CAFFEINE, PAPAVER SOMNIFERUM LATEX, PARACETAMOL) [Concomitant]
  10. OMEPRAZOLE [Concomitant]
  11. OXYCONTIN [Concomitant]
  12. OXYNORM [Concomitant]
  13. SEROPRAM [Concomitant]
  14. SOTALOL HCL [Concomitant]

REACTIONS (9)
  - ABDOMINAL PAIN UPPER [None]
  - ANOREXIA [None]
  - DIARRHOEA [None]
  - DYSPNOEA [None]
  - GENERAL PHYSICAL HEALTH DETERIORATION [None]
  - MALIGNANT NEOPLASM PROGRESSION [None]
  - MALNUTRITION [None]
  - PERFORMANCE STATUS DECREASED [None]
  - TACHYCARDIA [None]
